FAERS Safety Report 5678155-0 (Version None)
Quarter: 2008Q1

REPORT INFORMATION
  Report Type: 
  Country: None (occurrence: None)
  Receive Date: 20080320
  Receipt Date: 20080312
  Transmission Date: 20080703
  Serious: Yes (Hospitalization, Disabling)
  Sender: FDA-Public Use
  Company Number: 2008SP004178

PATIENT
  Sex: Female
  Weight: 0.63 kg

DRUGS (1)
  1. INTRON A [Suspect]
     Indication: HAEMANGIOMA
     Dosage: IV
     Route: 042

REACTIONS (1)
  - CEREBRAL PALSY [None]
